FAERS Safety Report 10183018 (Version 1)
Quarter: 2014Q2

REPORT INFORMATION
  Report Type: Report from Study
  Country: US (occurrence: US)
  Receive Date: 20140520
  Receipt Date: 20140520
  Transmission Date: 20141212
  Serious: Yes (Death, Other)
  Sender: FDA-Public Use
  Company Number: US-SA-2014SA063093

PATIENT
  Sex: 0

DRUGS (6)
  1. CLOFARABINE [Suspect]
     Indication: ACUTE LYMPHOCYTIC LEUKAEMIA
     Dosage: DAYS 2-6
     Route: 065
  2. CYTARABINE [Suspect]
     Indication: ACUTE LYMPHOCYTIC LEUKAEMIA
     Dosage: DAYS 1-5 DOSE:1 GRAM(S)/SQUARE METER
     Route: 065
  3. EPRATUZUMAB [Suspect]
     Indication: ACUTE LYMPHOCYTIC LEUKAEMIA
     Dosage: DAYS 7, 14, 21 AND 28
     Route: 065
  4. ACETAMINOPHEN [Concomitant]
     Indication: PREMEDICATION
     Dosage: 30-60 MIN PRIOR TO TREATMENT WITH EPRATUZUMAB
     Route: 048
  5. DIPHENHYDRAMINE [Concomitant]
     Dosage: 30-60 MIN PRIOR TO TREATMENT WITH EPRATUZUMAB
     Route: 042
  6. METHOTREXATE [Concomitant]
     Dosage: TWICE , AT LEAST ONE WEEK APART, DURING INDUCTION
     Route: 037

REACTIONS (15)
  - Cardiac arrest [Fatal]
  - Leukaemia [Fatal]
  - Graft versus host disease [Fatal]
  - Death [Fatal]
  - Acute respiratory distress syndrome [Fatal]
  - Encephalopathy [Unknown]
  - Enterocolitis [Unknown]
  - Hepatic failure [Unknown]
  - Hypoxia [Unknown]
  - Lung infection [Unknown]
  - Sepsis [Fatal]
  - Renal failure acute [Unknown]
  - Febrile neutropenia [Unknown]
  - Respiratory failure [Unknown]
  - Tumour lysis syndrome [Unknown]
